FAERS Safety Report 15591751 (Version 1)
Quarter: 2018Q4

REPORT INFORMATION
  Report Type: Spontaneous
  Country: US (occurrence: US)
  Receive Date: 20181106
  Receipt Date: 20181106
  Transmission Date: 20190205
  Serious: Yes (Hospitalization)
  Sender: FDA-Public Use
  Company Number: None

PATIENT
  Sex: Female

DRUGS (1)
  1. TIZANIDINE. [Suspect]
     Active Substance: TIZANIDINE
     Indication: HYPOTONIA
     Route: 048

REACTIONS (4)
  - Mental disorder [None]
  - Fear [None]
  - Speech sound disorder [None]
  - Discomfort [None]

NARRATIVE: CASE EVENT DATE: 20181012
